FAERS Safety Report 20552414 (Version 1)
Quarter: 2022Q1

REPORT INFORMATION
  Report Type: Spontaneous
  Country: US (occurrence: US)
  Receive Date: 20220304
  Receipt Date: 20220304
  Transmission Date: 20220424
  Serious: No
  Sender: FDA-Public Use
  Company Number: US-BoehringerIngelheim-2022-BI-154638

PATIENT
  Sex: Male
  Weight: 72.7 kg

DRUGS (4)
  1. OFEV [Suspect]
     Active Substance: NINTEDANIB
     Indication: Product used for unknown indication
  2. Mecitetan [Concomitant]
     Indication: Pulmonary hypertension
     Route: 048
  3. TYVASO [Concomitant]
     Active Substance: TREPROSTINIL
     Indication: Pulmonary hypertension
     Dosage: 16 BREATHS INHALED QID
     Route: 055
     Dates: start: 20210624
  4. Slidenfenail citrate [Concomitant]
     Indication: Product used for unknown indication

REACTIONS (1)
  - Extra dose administered [Unknown]
